FAERS Safety Report 5813883-5 (Version None)
Quarter: 2008Q3

REPORT INFORMATION
  Report Type: 
  Country: None (occurrence: None)
  Receive Date: 20080717
  Receipt Date: 20080703
  Transmission Date: 20090109
  Serious: Yes (Other)
  Sender: FDA-Public Use
  Company Number: CA-GENENTECH-264457

PATIENT
  Age: 85 Year
  Sex: Female

DRUGS (5)
  1. RITUXAN [Suspect]
     Indication: DRUG USE FOR UNKNOWN INDICATION
     Dosage: 525 MG, UNK
     Route: 042
  2. KYTRIL [Concomitant]
     Indication: DRUG USE FOR UNKNOWN INDICATION
  3. DECADRON [Concomitant]
     Indication: DRUG USE FOR UNKNOWN INDICATION
  4. ATASOL [Concomitant]
     Indication: DRUG USE FOR UNKNOWN INDICATION
  5. BENADRYL [Concomitant]
     Indication: DRUG USE FOR UNKNOWN INDICATION

REACTIONS (1)
  - HYPOPROTEINAEMIA [None]
